FAERS Safety Report 20261738 (Version 2)
Quarter: 2022Q1

REPORT INFORMATION
  Report Type: Spontaneous
  Country: CA (occurrence: CA)
  Receive Date: 20211231
  Receipt Date: 20220112
  Transmission Date: 20220424
  Serious: Yes (Other)
  Sender: FDA-Public Use
  Company Number: CA-TEVA-2021-CA-1993077

PATIENT
  Age: 33 Year
  Sex: Female

DRUGS (19)
  1. DEXAMETHASONE [Suspect]
     Active Substance: DEXAMETHASONE
     Indication: Disease recurrence
     Dosage: SALVAGE CHEMOTHERAPY WITH SMILE PROTOCOL; DEXAMETHASONE DAILY ON DAYS 2-4
     Route: 065
     Dates: start: 201908
  2. DEXAMETHASONE [Suspect]
     Active Substance: DEXAMETHASONE
     Indication: Angiocentric lymphoma
  3. ETOPOSIDE [Suspect]
     Active Substance: ETOPOSIDE
     Indication: Disease recurrence
     Dosage: SALVAGE CHEMOTHERAPY WITH SMILE PROTOCOL; ETOPOSIDE ON DAYS 2-4
     Route: 041
     Dates: start: 201908
  4. ETOPOSIDE [Suspect]
     Active Substance: ETOPOSIDE
     Indication: Angiocentric lymphoma
  5. LEUCOVORIN [Suspect]
     Active Substance: LEUCOVORIN
     Indication: Disease recurrence
     Dosage: SALVAGE CHEMOTHERAPY WITH SMILE PROTOCOL; FOLINIC-ACID 15 MG, INTRAVENOUS INFUSION, FOUR TIMES A ...
     Route: 041
     Dates: start: 201908
  6. LEUCOVORIN [Suspect]
     Active Substance: LEUCOVORIN
     Indication: Angiocentric lymphoma
  7. IFOSFAMIDE [Suspect]
     Active Substance: IFOSFAMIDE
     Indication: Disease recurrence
     Dosage: SALVAGE CHEMOTHERAPY WITH SMILE PROTOCOL; IFOSFAMIDE ON DAYS 2-4
     Route: 041
     Dates: start: 201908
  8. IFOSFAMIDE [Suspect]
     Active Substance: IFOSFAMIDE
     Indication: Angiocentric lymphoma
  9. MESNA [Suspect]
     Active Substance: MESNA
     Indication: Disease recurrence
     Dosage: SALVAGE CHEMOTHERAPY WITH SMILE PROTOCOL; MESNA ONCE DAILY ON DAYS 2-4
     Route: 041
     Dates: start: 201908
  10. MESNA [Suspect]
     Active Substance: MESNA
     Indication: Angiocentric lymphoma
  11. METHOTREXATE [Suspect]
     Active Substance: METHOTREXATE
     Indication: Disease recurrence
     Dosage: SALVAGE CHEMOTHERAPY WITH SMILE PROTOCOL; METHOTREXATE 2 G/MG ORALLY ON DAY 1
     Route: 048
     Dates: start: 201908
  12. METHOTREXATE [Suspect]
     Active Substance: METHOTREXATE
     Indication: Angiocentric lymphoma
  13. ASPARAGINASE [Suspect]
     Active Substance: ASPARAGINASE
     Indication: Disease recurrence
     Dosage: SALVAGE CHEMOTHERAPY WITH SMILE PROTOCOL; ASPARAGINASE 6000 U/M2 ON DAYS 8, 10, 12, 14, 16, 18 AN...
     Route: 030
     Dates: start: 201908
  14. ASPARAGINASE [Suspect]
     Active Substance: ASPARAGINASE
     Indication: Angiocentric lymphoma
  15. BRENTUXIMAB VEDOTIN [Suspect]
     Active Substance: BRENTUXIMAB VEDOTIN
     Indication: Disease recurrence
     Dosage: SALVAGE CHEMOTHERAPY WITH SMILE PROTOCOL; ASPARAGINASE 6000 U/M2 ON DAYS 8, 10, 12, 14, 16, 18 AN...
     Route: 065
     Dates: start: 201910
  16. BRENTUXIMAB VEDOTIN [Suspect]
     Active Substance: BRENTUXIMAB VEDOTIN
     Indication: Angiocentric lymphoma
  17. PEMBROLIZUMAB [Suspect]
     Active Substance: PEMBROLIZUMAB
     Indication: Disease recurrence
     Dosage: CYCLES OF 3WEEKS
     Route: 065
     Dates: start: 201912
  18. PEMBROLIZUMAB [Suspect]
     Active Substance: PEMBROLIZUMAB
     Indication: Angiocentric lymphoma
  19. PREDNISONE [Concomitant]
     Active Substance: PREDNISONE
     Indication: Drug therapy
     Route: 065

REACTIONS (7)
  - Neutropenia [Unknown]
  - Thrombocytopenia [Unknown]
  - Peripheral sensory neuropathy [Recovering/Resolving]
  - Peripheral motor neuropathy [Recovering/Resolving]
  - Therapy non-responder [Unknown]
  - Nausea [Not Recovered/Not Resolved]
  - Cancer fatigue [Not Recovered/Not Resolved]

NARRATIVE: CASE EVENT DATE: 20190101
